FAERS Safety Report 8286554 (Version 4)
Quarter: 2014Q1

REPORT INFORMATION
  Report Type: Spontaneous
  Country: US (occurrence: US)
  Receive Date: 20111213
  Receipt Date: 20140124
  Transmission Date: 20141002
  Serious: Yes (Hospitalization, Other)
  Sender: FDA-Public Use
  Company Number: US-ASTRAZENECA-2011SE73927

PATIENT
  Age: 56 Year
  Sex: Female
  Weight: 70.3 kg

DRUGS (8)
  1. SEROQUEL [Suspect]
     Indication: BIPOLAR I DISORDER
     Route: 048
     Dates: start: 2008, end: 20140113
  2. SEROQUEL [Suspect]
     Indication: SLEEP DISORDER
     Route: 048
     Dates: start: 2008, end: 20140113
  3. CRESTOR [Suspect]
     Route: 048
  4. WILBISTRONE [Concomitant]
  5. LANCIS [Concomitant]
     Indication: BLOOD INSULIN ABNORMAL
  6. LEVOTHYROXINE [Concomitant]
  7. WELLBUTRIN [Concomitant]
     Indication: DEPRESSION
  8. TRILETTAL [Concomitant]
     Indication: MOOD SWINGS

REACTIONS (7)
  - Lower limb fracture [Unknown]
  - Pneumonia [Unknown]
  - Activities of daily living impaired [Unknown]
  - Insomnia [Unknown]
  - Somnolence [Unknown]
  - Drug dose omission [Unknown]
  - Off label use [Unknown]
